FAERS Safety Report 4544586-5 (Version None)
Quarter: 2005Q1

REPORT INFORMATION
  Report Type: 
  Country: None (occurrence: None)
  Receive Date: 20050103
  Receipt Date: 20050103
  Transmission Date: 20050727
  Serious: Yes (Hospitalization)
  Sender: FDA-Public Use
  Company Number: None

PATIENT
  Age: 42 Year
  Sex: Male
  Weight: 78 kg

DRUGS (4)
  1. MORPHINE [Suspect]
     Indication: PAIN
     Dosage: 260MG   BID ORAL
     Route: 048
  2. XANAX [Suspect]
     Indication: ANXIETY
     Dosage: 1MG TID ORAL
     Route: 048
  3. PERCOCET [Concomitant]
  4. RESTORIL [Concomitant]

REACTIONS (7)
  - DYSPHONIA [None]
  - DYSPNOEA [None]
  - DYSPNOEA AT REST [None]
  - HYPOVENTILATION [None]
  - INSOMNIA [None]
  - MOUTH BREATHING [None]
  - RESPIRATORY RATE DECREASED [None]
